FAERS Safety Report 8079678-X (Version None)
Quarter: 2012Q1

REPORT INFORMATION
  Report Type: 
  Country: None (occurrence: None)
  Receive Date: 20120128
  Receipt Date: 20110812
  Transmission Date: 20120608
  Serious: No
  Sender: FDA-Public Use
  Company Number: US-ABBOTT-11P-163-0845736-00

PATIENT
  Sex: Female

DRUGS (8)
  1. CYMBALTA [Concomitant]
     Indication: DEPRESSION
  2. MOBIC [Concomitant]
     Indication: RHEUMATOID ARTHRITIS
     Dates: end: 20110101
  3. HYDROCODONE BITARTRATE [Concomitant]
     Indication: PAIN
     Dosage: 5/500 1 EVERY 8 HRS
  4. FIORICET [Concomitant]
     Indication: HEADACHE
     Dosage: 1 TWICE A DAY
     Dates: start: 20110101
  5. HUMIRA [Suspect]
     Indication: RHEUMATOID ARTHRITIS
     Route: 058
     Dates: start: 20090101
  6. FIORINAL [Concomitant]
     Indication: HEADACHE
     Dates: end: 20110101
  7. PLAQUENIL [Concomitant]
     Indication: RHEUMATOID ARTHRITIS
  8. FOLIC ACID [Concomitant]
     Indication: RHEUMATOID ARTHRITIS

REACTIONS (7)
  - OESOPHAGEAL ULCER [None]
  - PAIN [None]
  - JOINT WARMTH [None]
  - ARTHRITIS [None]
  - ARTHRALGIA [None]
  - JOINT RANGE OF MOTION DECREASED [None]
  - JOINT SWELLING [None]
